FAERS Safety Report 10301095 (Version 3)
Quarter: 2014Q3

REPORT INFORMATION
  Report Type: Spontaneous
  Country: US (occurrence: US)
  Receive Date: 20140714
  Receipt Date: 20140731
  Transmission Date: 20150326
  Serious: No
  Sender: FDA-Public Use
  Company Number: US-009507513-1407USA005835

PATIENT
  Age: 71 Year
  Sex: Male

DRUGS (1)
  1. DULERA [Suspect]
     Active Substance: FORMOTEROL FUMARATE DIHYDRATE\MOMETASONE FUROATE
     Dosage: 2 PUFFS TWICE A DAY, BID, 1 STANDARD DOSE OF 13
     Route: 055

REACTIONS (2)
  - Product quality issue [Unknown]
  - Adverse event [Unknown]

NARRATIVE: CASE EVENT DATE: 201407
